FAERS Safety Report 20606513 (Version 1)
Quarter: 2022Q1

REPORT INFORMATION
  Report Type: Spontaneous
  Country: GR (occurrence: GR)
  Receive Date: 20220317
  Receipt Date: 20220317
  Transmission Date: 20220423
  Serious: Yes (Death)
  Sender: FDA-Public Use
  Company Number: GR-PFIZER INC-202200350395

PATIENT
  Age: 64 Year
  Sex: Male

DRUGS (5)
  1. GENTAMICIN [Suspect]
     Active Substance: GENTAMICIN
     Indication: Evidence based treatment
     Dosage: UNK
     Route: 042
  2. HYDROCORTISONE SODIUM SUCCINATE [Suspect]
     Active Substance: HYDROCORTISONE SODIUM SUCCINATE
     Indication: Septic shock
     Dosage: UNK
     Route: 041
  3. TIGECYCLINE [Suspect]
     Active Substance: TIGECYCLINE
     Indication: Evidence based treatment
     Dosage: UNK
     Route: 042
  4. VANCOMYCIN HYDROCHLORIDE [Suspect]
     Active Substance: VANCOMYCIN HYDROCHLORIDE
     Indication: Evidence based treatment
     Dosage: UNK
     Route: 042
  5. COLISTIN [Suspect]
     Active Substance: COLISTIN
     Indication: Evidence based treatment
     Dosage: UNK
     Route: 042

REACTIONS (1)
  - Bronchopulmonary aspergillosis [Fatal]
